FAERS Safety Report 15491379 (Version 5)
Quarter: 2018Q4

REPORT INFORMATION
  Report Type: Report from Study
  Country: CA (occurrence: CA)
  Receive Date: 20181012
  Receipt Date: 20181129
  Transmission Date: 20190205
  Serious: Yes (Other)
  Sender: FDA-Public Use
  Company Number: CA-ROCHE-2124762

PATIENT
  Age: 47 Year
  Sex: Female

DRUGS (15)
  1. OCREVUS [Suspect]
     Active Substance: OCRELIZUMAB
     Indication: RELAPSING-REMITTING MULTIPLE SCLEROSIS
     Route: 042
     Dates: start: 20180509
  2. GABAPENTIN. [Concomitant]
     Active Substance: GABAPENTIN
     Indication: PAIN
     Dosage: (SHE TOOK MANY MEDICATIONS BUT THIS ONE AT LEAST 10 YEARS
     Route: 048
  3. GABAPENTIN. [Concomitant]
     Active Substance: GABAPENTIN
     Dosage: 400 MG AND 800 MG THREE TIMES DAILY
     Route: 065
  4. AMLODIPIN [Concomitant]
     Active Substance: AMLODIPINE BESYLATE
     Indication: BLOOD PRESSURE MEASUREMENT
     Dosage: ONGOING - YES?(CANNOT REMEMBER WHEN BUT AT LEAST 2 YEARS)
     Route: 048
  5. PREGABALIN. [Concomitant]
     Active Substance: PREGABALIN
     Indication: PAIN
     Dosage: ONGOING - YES?SINCE LONG TIME
     Route: 048
  6. ZOPICLONE [Concomitant]
     Active Substance: ZOPICLONE
     Dosage: INDICATION: TO SLEEP?7.5 MG ONCE DAILY, ONGOING -YES?ONCE AT NIGHT TO HELP SLEEPING LONG TIME AGO
     Route: 048
  7. CELECOXIB. [Concomitant]
     Active Substance: CELECOXIB
     Indication: CARPAL TUNNEL SYNDROME
     Route: 048
  8. OLMESARTAN [Concomitant]
     Active Substance: OLMESARTAN
     Indication: BLOOD PRESSURE MEASUREMENT
     Dosage: ONGOING - YES?CANNOT REMEMBER WHEN BUT AT LEAST 2 YEARS
     Route: 048
  9. OCREVUS [Suspect]
     Active Substance: OCRELIZUMAB
     Dosage: SECOND INFUSION,?PATIENT RECEIVED MAINTENENCE DOSE ON 15/NOV/2018
     Route: 042
     Dates: start: 20180523
  10. TRAZODONE [Concomitant]
     Active Substance: TRAZODONE HYDROCHLORIDE
     Indication: DEPRESSION
     Dosage: INDICATION: TO SLEEP?AT NIGHT SINCE LONG TIME
     Route: 048
  11. DEXILANT [Concomitant]
     Active Substance: DEXLANSOPRAZOLE
     Dosage: INDICATION: PROTECT STOMACH
     Route: 048
  12. ROSUVASTATIN. [Concomitant]
     Active Substance: ROSUVASTATIN
     Indication: BLOOD CHOLESTEROL
     Dosage: ONGOING -YES?CANNOT REMEMBER WHEN BUT AT LEAST 2 YEARS
     Route: 048
  13. OCREVUS [Suspect]
     Active Substance: OCRELIZUMAB
     Route: 042
  14. SYNTHROID [Concomitant]
     Active Substance: LEVOTHYROXINE SODIUM
     Dosage: INDICATION: THYROID?ONGOING - YES, 0.1 MG ONCE DAILY?MORNING MORE THAN 10 YEARS
     Route: 048
  15. CARBAMAZEPINE. [Concomitant]
     Active Substance: CARBAMAZEPINE
     Indication: PAIN
     Dosage: ONGOING - YES?SINCE LONG TIME
     Route: 048

REACTIONS (9)
  - Conjunctivitis [Recovering/Resolving]
  - Toothache [Not Recovered/Not Resolved]
  - Fatigue [Unknown]
  - Fatigue [Not Recovered/Not Resolved]
  - Stomatitis [Recovering/Resolving]
  - Lichen planus [Not Recovered/Not Resolved]
  - Asthenia [Unknown]
  - Infusion related reaction [Not Recovered/Not Resolved]
  - Nasopharyngitis [Recovering/Resolving]

NARRATIVE: CASE EVENT DATE: 20180509
